FAERS Safety Report 4451059-7 (Version None)
Quarter: 2004Q3

REPORT INFORMATION
  Report Type: 
  Country: None (occurrence: None)
  Receive Date: 20040916
  Receipt Date: 20040806
  Transmission Date: 20050211
  Serious: Yes (Life-Threatening)
  Sender: FDA-Public Use
  Company Number: JP-ROCHE-376881

PATIENT
  Age: 67 Year
  Sex: Male
  Weight: 60 kg

DRUGS (14)
  1. ROCEPHIN [Suspect]
     Indication: PNEUMONIA
     Route: 042
     Dates: start: 20040711, end: 20040730
  2. MINOMYCIN [Concomitant]
     Indication: PNEUMONIA
     Route: 042
     Dates: start: 20040711, end: 20040717
  3. MS CONTIN [Concomitant]
     Indication: PAIN
     Route: 048
     Dates: start: 20040713, end: 20040728
  4. FENTANYL [Concomitant]
     Indication: PAIN
     Route: 061
     Dates: start: 20040719, end: 20040731
  5. DIOVAN [Concomitant]
     Indication: HYPERTENSION
     Route: 048
     Dates: start: 20040711, end: 20040731
  6. PERSANTIN [Concomitant]
     Route: 048
     Dates: start: 20040711, end: 20040731
  7. CALCIUM CARBONATE [Concomitant]
     Route: 048
     Dates: start: 20040711, end: 20040731
  8. SODIUM BICARBONATE [Concomitant]
     Route: 048
     Dates: start: 20040711, end: 20040731
  9. CALCIUM POLYSTYRENE SULFONATE [Concomitant]
     Dosage: TRADE NAME REPORTED AS ARGAMATE.
     Route: 048
     Dates: start: 20040711, end: 20040731
  10. FERROMIA [Concomitant]
     Indication: IRON DEFICIENCY ANAEMIA
     Route: 048
     Dates: start: 20040711, end: 20040731
  11. NAUZELIN [Concomitant]
     Indication: ANTIEMETIC SUPPORTIVE CARE
     Route: 048
     Dates: start: 20040715, end: 20040731
  12. CALONAL [Concomitant]
     Indication: PAIN
     Route: 048
     Dates: start: 20040713, end: 20040731
  13. TIENAM [Concomitant]
     Indication: PNEUMONIA
     Route: 042
     Dates: start: 20040729
  14. LASIX [Concomitant]
     Route: 042
     Dates: start: 20040726

REACTIONS (5)
  - CYANOSIS [None]
  - INTERSTITIAL LUNG DISEASE [None]
  - OEDEMA [None]
  - PAIN [None]
  - RESTLESSNESS [None]
